FAERS Safety Report 13167639 (Version 2)
Quarter: 2017Q1

REPORT INFORMATION
  Report Type: Report from Study
  Country: FR (occurrence: FR)
  Receive Date: 20170131
  Receipt Date: 20170207
  Transmission Date: 20170428
  Serious: Yes (Death)
  Sender: FDA-Public Use
  Company Number: FR-ROCHE-1886735

PATIENT
  Age: 72 Year
  Sex: Female
  Weight: 76 kg

DRUGS (4)
  1. COBIMETINIB [Suspect]
     Active Substance: COBIMETINIB
     Indication: MALIGNANT MELANOMA
     Dosage: LAST DOSE PRIOR TO AE 25/JAN/2017 ONSET, 60 MCG?CUMULATIVE DOSE SINCE THE FIRST ADMINISTRATION 900 M
     Route: 048
     Dates: start: 20170112
  2. MEDROL [Concomitant]
     Active Substance: METHYLPREDNISOLONE
     Indication: BRAIN OEDEMA
     Route: 048
     Dates: start: 20161223, end: 20170125
  3. VEMURAFENIB [Suspect]
     Active Substance: VEMURAFENIB
     Indication: MALIGNANT MELANOMA
     Dosage: LAST DOSE PRIOR TO AE ONSET 25/JAN/2017 1970 MCG?CUMULATIVE DOSE SINCE THE FIRST ADMINISTRATION 2880
     Route: 048
     Dates: start: 20170111
  4. CEFTRIAXONE. [Concomitant]
     Active Substance: CEFTRIAXONE
     Indication: INFECTION
     Route: 042
     Dates: start: 20170115, end: 20170123

REACTIONS (1)
  - Intestinal perforation [Fatal]

NARRATIVE: CASE EVENT DATE: 20170126
